FAERS Safety Report 5520855-7 (Version None)
Quarter: 2007Q4

REPORT INFORMATION
  Report Type: 
  Country: None (occurrence: None)
  Receive Date: 20071119
  Receipt Date: 20071114
  Transmission Date: 20080405
  Serious: Yes (Hospitalization)
  Sender: FDA-Public Use
  Company Number: B0487627A

PATIENT
  Age: 89 Year
  Sex: Female
  Weight: 43 kg

DRUGS (3)
  1. PAXIL [Suspect]
     Indication: DRUG USE FOR UNKNOWN INDICATION
     Dosage: 10MG PER DAY
     Route: 048
     Dates: end: 20070912
  2. NITRAZEPAM [Concomitant]
     Dosage: 5MG PER DAY
     Route: 048
     Dates: end: 20070912
  3. GLYSENNID [Concomitant]
     Dosage: 24MG PER DAY
     Route: 048
     Dates: end: 20070912

REACTIONS (4)
  - BLOOD ELECTROLYTES ABNORMAL [None]
  - DEHYDRATION [None]
  - HYPONATRAEMIA [None]
  - INAPPROPRIATE ANTIDIURETIC HORMONE SECRETION [None]
